FAERS Safety Report 7146698-9 (Version None)
Quarter: 2010Q4

REPORT INFORMATION
  Report Type: 
  Country: None (occurrence: None)
  Receive Date: 20101208
  Receipt Date: 20101201
  Transmission Date: 20110411
  Serious: Yes (Death, Hospitalization)
  Sender: FDA-Public Use
  Company Number: FR-PFIZER INC-2010117897

PATIENT
  Age: 53 Year
  Sex: Male
  Weight: 109 kg

DRUGS (5)
  1. SUTENT [Suspect]
     Indication: RENAL CANCER METASTATIC
     Dosage: 50 MG, 1X/DAY
     Route: 048
     Dates: start: 20100320, end: 20100906
  2. SECTRAL [Concomitant]
     Route: 048
  3. PLAVIX [Concomitant]
     Route: 048
  4. KARDEGIC [Concomitant]
     Route: 048
  5. TAHOR [Concomitant]
     Route: 048

REACTIONS (3)
  - DISEASE PROGRESSION [None]
  - METASTATIC RENAL CELL CARCINOMA [None]
  - PERICARDIAL HAEMORRHAGE [None]
